FAERS Safety Report 14897678 (Version 1)
Quarter: 2018Q2

REPORT INFORMATION
  Report Type: Spontaneous
  Country: FR (occurrence: FR)
  Receive Date: 20180515
  Receipt Date: 20180515
  Transmission Date: 20180711
  Serious: Yes (Life-Threatening)
  Sender: FDA-Public Use
  Company Number: FR-PFIZER INC-2018196078

PATIENT
  Age: 54 Year
  Sex: Male
  Weight: 66 kg

DRUGS (9)
  1. SERESTA [Suspect]
     Active Substance: OXAZEPAM
     Indication: ANXIETY
     Dosage: 30 MG, DAILY (IN THE MORNING, AT NOON AND IN THE EVENING: TOTAL OF 30 MG DAILY)
     Route: 048
     Dates: start: 201712
  2. KEPPRA [Concomitant]
     Active Substance: LEVETIRACETAM
     Indication: EPILEPSY
     Dosage: 200 MG, DAILY (IN THE MORNING AND THE EVENING: TOTAL OF 200 MG DAILY)
     Route: 048
     Dates: start: 2018
  3. BLEOMYCIN [Suspect]
     Active Substance: BLEOMYCIN SULFATE
     Indication: HODGKIN^S DISEASE
     Dosage: UNK
     Route: 042
     Dates: start: 201707, end: 201802
  4. INNOHEP [Concomitant]
     Active Substance: TINZAPARIN SODIUM
     Indication: DEEP VEIN THROMBOSIS
     Dosage: 0.5 ML, 1X/DAY
     Route: 058
     Dates: start: 201712, end: 201803
  5. OLANZAPINE. [Concomitant]
     Active Substance: OLANZAPINE
     Indication: HODGKIN^S DISEASE
     Dosage: 5 MG, 1X/DAY
     Route: 048
     Dates: start: 201712
  6. VELBE [Suspect]
     Active Substance: VINBLASTINE SULFATE
     Indication: HODGKIN^S DISEASE
     Dosage: UNK
     Route: 042
     Dates: start: 201707, end: 201802
  7. DACARBAZINE. [Suspect]
     Active Substance: DACARBAZINE
     Indication: HODGKIN^S DISEASE
     Dosage: UNK
     Route: 042
     Dates: start: 201707, end: 201802
  8. CARBAMAZEPINE. [Concomitant]
     Active Substance: CARBAMAZEPINE
     Indication: SCHIZOAFFECTIVE DISORDER
     Dosage: 400 MG, 1X/DAY
     Route: 048
     Dates: start: 201712
  9. DOXORUBICIN HCL [Suspect]
     Active Substance: DOXORUBICIN HYDROCHLORIDE
     Indication: HODGKIN^S DISEASE
     Dosage: UNK
     Route: 042
     Dates: start: 201707, end: 201802

REACTIONS (2)
  - Lung disorder [Recovered/Resolved]
  - Toxic skin eruption [Recovering/Resolving]

NARRATIVE: CASE EVENT DATE: 20180310
